FAERS Safety Report 6684390-5 (Version None)
Quarter: 2010Q2

REPORT INFORMATION
  Report Type: 
  Country: None (occurrence: None)
  Receive Date: 20100416
  Receipt Date: 20100407
  Transmission Date: 20101027
  Serious: Yes (Other)
  Sender: FDA-Public Use
  Company Number: FR-PFIZER INC-2010045097

PATIENT
  Age: 50 Year
  Sex: Male

DRUGS (1)
  1. TAHOR [Suspect]
     Dosage: 10 MG, UNK
     Dates: start: 20000101

REACTIONS (1)
  - MUSCLE RUPTURE [None]
